FAERS Safety Report 13291889 (Version 1)
Quarter: 2017Q1

REPORT INFORMATION
  Report Type: Spontaneous
  Country: GB (occurrence: GB)
  Receive Date: 20170303
  Receipt Date: 20170303
  Transmission Date: 20170428
  Serious: Yes (Disabling, Other)
  Sender: FDA-Public Use
  Company Number: GB-GLAXOSMITHKLINE-GB2017028439

PATIENT
  Age: 70 Year
  Sex: Female
  Weight: 82.55 kg

DRUGS (4)
  1. SIMVASTATIN. [Concomitant]
     Active Substance: SIMVASTATIN
     Dosage: UNK
  2. CLOPIDOGREL [Concomitant]
     Active Substance: CLOPIDOGREL BISULFATE
     Dosage: 75 MG, UNK
  3. ACYCLOVIR. [Suspect]
     Active Substance: ACYCLOVIR
     Indication: HUMAN T-CELL LYMPHOTROPIC VIRUS INFECTION
     Dosage: 800 MG, UNK
     Route: 048
     Dates: start: 20160524, end: 20160531
  4. CO-TENIDONE [Concomitant]
     Active Substance: ATENOLOL\CHLORTHALIDONE
     Dosage: UNK

REACTIONS (6)
  - Arthralgia [Not Recovered/Not Resolved]
  - Formication [Recovering/Resolving]
  - Paraesthesia [Recovering/Resolving]
  - Gout [Not Recovered/Not Resolved]
  - Musculoskeletal pain [Recovering/Resolving]
  - Circumstance or information capable of leading to medication error [Unknown]
